FAERS Safety Report 5958200-5 (Version None)
Quarter: 2008Q4

REPORT INFORMATION
  Report Type: 
  Country: None (occurrence: None)
  Receive Date: 20081119
  Receipt Date: 20081111
  Transmission Date: 20090506
  Serious: Yes (Other)
  Sender: FDA-Public Use
  Company Number: DE-BRACCO-000208

PATIENT
  Sex: Female

DRUGS (8)
  1. MULTIHANCE [Suspect]
     Indication: NUCLEAR MAGNETIC RESONANCE IMAGING
     Dosage: DOSE FORM: AMPOULE; DOSAGE: 0,5 AMPOULLE IN LEFT ELLBOW (PARA) AND 0,5 AMPOULLE IN RIGHT ELLBOW.
     Route: 042
     Dates: start: 20081009, end: 20081009
  2. MULTIHANCE [Suspect]
     Indication: PITUITARY TUMOUR BENIGN
     Dosage: DOSE FORM: AMPOULE; DOSAGE: 0,5 AMPOULLE IN LEFT ELLBOW (PARA) AND 0,5 AMPOULLE IN RIGHT ELLBOW.
     Route: 042
     Dates: start: 20081009, end: 20081009
  3. PREDNISOLONE [Concomitant]
     Dosage: DOSE FORM: TABLET
     Route: 048
     Dates: start: 20081010, end: 20081010
  4. PREDNISOLONE                       /00016201/ [Concomitant]
     Route: 042
     Dates: start: 20081012, end: 20081012
  5. CLEMASTINE FUMARATE [Concomitant]
     Dosage: TRANSIENT INTAKE
     Route: 065
  6. TELFAST [Concomitant]
     Indication: SYSTEMIC MASTOCYTOSIS
     Dosage: 120 MG TABLET 1-0-1, STARTED PRIOR TO MRI
     Route: 065
  7. RANITIDINE HCL [Concomitant]
     Indication: SYSTEMIC MASTOCYTOSIS
     Dosage: STRENGTH 150 MG, 1-0-1, STARTED PRIOR TO MRI
     Route: 065
  8. CORTICOSTEROID NOS [Concomitant]
     Route: 048
     Dates: start: 20081013

REACTIONS (14)
  - DYSPNOEA [None]
  - ERYTHEMA [None]
  - EXTRAVASATION [None]
  - FATIGUE [None]
  - FEELING HOT [None]
  - GROWING PAINS [None]
  - HYPERHIDROSIS [None]
  - INJECTION SITE ERYTHEMA [None]
  - INJECTION SITE IRRITATION [None]
  - INJECTION SITE SWELLING [None]
  - NIGHTMARE [None]
  - PAIN IN EXTREMITY [None]
  - PYREXIA [None]
  - SWELLING FACE [None]
